FAERS Safety Report 13907171 (Version 3)
Quarter: 2017Q4

REPORT INFORMATION
  Report Type: Spontaneous
  Country: US (occurrence: US)
  Receive Date: 20170825
  Receipt Date: 20171226
  Transmission Date: 20180320
  Serious: Yes (Other)
  Sender: FDA-Public Use
  Company Number: US-009507513-1708USA011116

PATIENT
  Sex: Female

DRUGS (1)
  1. NEXPLANON [Suspect]
     Active Substance: ETONOGESTREL
     Indication: CONTRACEPTION
     Dosage: 68 MG, UNK, 1 IMPLANT
     Route: 059
     Dates: start: 201706

REACTIONS (2)
  - Unintended pregnancy [Unknown]
  - Pregnancy with contraceptive device [Unknown]

NARRATIVE: CASE EVENT DATE: 20170810
